FAERS Safety Report 21661368 (Version 1)
Quarter: 2022Q4

REPORT INFORMATION
  Report Type: Spontaneous
  Country: US (occurrence: US)
  Receive Date: 20221130
  Receipt Date: 20221130
  Transmission Date: 20230112
  Serious: Yes (Death, Hospitalization)
  Sender: FDA-Public Use
  Company Number: US-CATALYST PHARMACEUTICALS, INC-US-CATA-22-02700

PATIENT
  Age: 81 Year
  Sex: Male

DRUGS (2)
  1. FIRDAPSE [Suspect]
     Active Substance: AMIFAMPRIDINE PHOSPHATE
     Indication: Myasthenic syndrome
     Dosage: 35 MG PER DAY
     Route: 048
     Dates: start: 20220414, end: 2022
  2. FIRDAPSE [Suspect]
     Active Substance: AMIFAMPRIDINE PHOSPHATE
     Dosage: 60 MG
     Route: 048
     Dates: start: 2022, end: 202211

REACTIONS (3)
  - Death [Fatal]
  - Myocardial infarction [Unknown]
  - Endocarditis [Unknown]

NARRATIVE: CASE EVENT DATE: 20221101
